FAERS Safety Report 8427481-0 (Version None)
Quarter: 2012Q2

REPORT INFORMATION
  Report Type: 
  Country: None (occurrence: None)
  Receive Date: 20120611
  Receipt Date: 20120605
  Transmission Date: 20120825
  Serious: Yes (Death, Hospitalization, Other)
  Sender: FDA-Public Use
  Company Number: US-ELI_LILLY_AND_COMPANY-US201203006172

PATIENT
  Sex: Male

DRUGS (3)
  1. CISPLATIN [Concomitant]
     Dosage: UNK, UNKNOWN
  2. ALIMTA [Suspect]
     Indication: LUNG NEOPLASM MALIGNANT
     Dosage: 830 MG, UNKNOWN
     Dates: start: 20120305, end: 20120312
  3. FOLIC ACID [Concomitant]

REACTIONS (9)
  - HEPATIC FAILURE [None]
  - RENAL FAILURE [None]
  - WHITE BLOOD CELL ANALYSIS DECREASED [None]
  - VOMITING [None]
  - PNEUMONIA ASPIRATION [None]
  - DEHYDRATION [None]
  - RESPIRATORY FAILURE [None]
  - VIRAL INFECTION [None]
  - HYPOTENSION [None]
